FAERS Safety Report 9797586 (Version 1)
Quarter: 2014Q1

REPORT INFORMATION
  Report Type: Spontaneous
  Country: US (occurrence: US)
  Receive Date: 20140106
  Receipt Date: 20140106
  Transmission Date: 20141002
  Serious: Yes (Death)
  Sender: FDA-Public Use
  Company Number: US-ROCHE-1329280

PATIENT
  Age: 73 Year
  Sex: Male

DRUGS (14)
  1. XELODA [Suspect]
     Indication: PRODUCT USED FOR UNKNOWN INDICATION
     Dosage: 2 BID FOR 21 DAYS
     Route: 048
     Dates: start: 20131211
  2. XELODA [Suspect]
     Dosage: EVERY 2 OF 3 DAYS
     Route: 048
     Dates: start: 20131211
  3. OMEPRAZOLE [Concomitant]
     Route: 065
  4. LORAZEPAM [Concomitant]
     Route: 065
  5. MIRTAZAPINE [Concomitant]
     Route: 065
  6. HYDROCODONE/ACETAMINOPHEN [Concomitant]
  7. LOSARTAN [Concomitant]
     Route: 065
  8. LOSARTAN [Concomitant]
     Route: 065
  9. HYDROCHLOROTHIAZIDE [Concomitant]
     Route: 065
  10. AMOXICILLIN [Concomitant]
     Route: 065
  11. CLARITHROMYCIN [Concomitant]
     Route: 065
  12. PANTOPRAZOLE [Concomitant]
     Route: 065
  13. FLUTICASONE [Concomitant]
     Route: 065
  14. LISINOPRIL [Concomitant]
     Route: 065

REACTIONS (1)
  - Death [Fatal]
